FAERS Safety Report 7362382-0 (Version None)
Quarter: 2011Q1

REPORT INFORMATION
  Report Type: 
  Country: None (occurrence: None)
  Receive Date: 20110318
  Receipt Date: 20110125
  Transmission Date: 20110831
  Serious: Yes (Death)
  Sender: FDA-Public Use
  Company Number: US-TYCO HEALTHCARE/MALLINCKRODT-T201100248

PATIENT
  Age: 42 Year
  Sex: Male

DRUGS (11)
  1. BENZODIAZEPINE DERIVATIVES [Suspect]
     Route: 048
  2. ALL OTHER THERAPEUTIC PRODUCTS [Suspect]
     Route: 048
  3. ACETAMINOPHEN AND HYDROCODONE BITARTRATE [Suspect]
     Route: 048
  4. VALPROIC ACID [Suspect]
     Route: 048
  5. LOVAZA [Suspect]
     Route: 048
  6. TRAZODONE HCL [Suspect]
     Route: 048
  7. ZOLPIDEM [Suspect]
     Route: 048
  8. OXYMORPHONE [Suspect]
     Route: 048
  9. ETHANOL [Suspect]
     Route: 048
  10. BARBITURATES [Suspect]
     Route: 048
  11. SSRI [Suspect]
     Route: 048

REACTIONS (1)
  - COMPLETED SUICIDE [None]
